FAERS Safety Report 9419833 (Version 1)
Quarter: 2013Q3

REPORT INFORMATION
  Report Type: Spontaneous
  Country: US (occurrence: None)
  Receive Date: 20130723
  Receipt Date: 20130723
  Transmission Date: 20140515
  Serious: Yes (Hospitalization)
  Sender: FDA-Public Use
  Company Number: USA/USA/13/0032669

PATIENT
  Age: 16 Year
  Sex: 0

DRUGS (1)
  1. IBUPROFEN [Suspect]
     Indication: PYREXIA

REACTIONS (2)
  - Pyrexia [None]
  - Condition aggravated [None]
